FAERS Safety Report 18597878 (Version 3)
Quarter: 2021Q1

REPORT INFORMATION
  Report Type: Report from Study
  Country: None (occurrence: US)
  Receive Date: 20201209
  Receipt Date: 20210105
  Transmission Date: 20210419
  Serious: Yes (Hospitalization)
  Sender: FDA-Public Use
  Company Number: US-ABBVIE-20K-163-3676298-00

PATIENT
  Age: 33 Year
  Sex: Female

DRUGS (2)
  1. ORILISSA [Suspect]
     Active Substance: ELAGOLIX SODIUM
     Indication: PRODUCT USED FOR UNKNOWN INDICATION
     Route: 048
     Dates: start: 20201110, end: 20201212
  2. ORILISSA [Suspect]
     Active Substance: ELAGOLIX SODIUM
     Route: 048
     Dates: start: 20201230

REACTIONS (6)
  - Cyst rupture [Recovering/Resolving]
  - Pain [Unknown]
  - Hot flush [Not Recovered/Not Resolved]
  - Libido decreased [Not Recovered/Not Resolved]
  - Hydrometra [Recovering/Resolving]
  - Mood swings [Not Recovered/Not Resolved]

NARRATIVE: CASE EVENT DATE: 2020
